FAERS Safety Report 13045395 (Version 2)
Quarter: 2017Q2

REPORT INFORMATION
  Report Type: Spontaneous
  Country: GB (occurrence: GB)
  Receive Date: 20161220
  Receipt Date: 20170613
  Transmission Date: 20170830
  Serious: Yes (Disabling, Other)
  Sender: FDA-Public Use
  Company Number: GB-009507513-1612GBR007593

PATIENT
  Sex: Female

DRUGS (1)
  1. ETONOGESTREL IMPLANT- UNKNOWN [Suspect]
     Active Substance: ETONOGESTREL
     Dosage: 1 IMPLANT, UNK, IN HER ARM
     Route: 059
     Dates: start: 20131212

REACTIONS (2)
  - Menstrual disorder [Unknown]
  - Deaf mutism [Not Recovered/Not Resolved]

NARRATIVE: CASE EVENT DATE: 20161211
